FAERS Safety Report 5854829-3 (Version None)
Quarter: 2008Q3

REPORT INFORMATION
  Report Type: 
  Country: None (occurrence: None)
  Receive Date: 20080822
  Receipt Date: 20080128
  Transmission Date: 20090109
  Serious: No
  Sender: FDA-Public Use
  Company Number: US-ABBOTT-08P-163-0435869-00

PATIENT
  Sex: Female
  Weight: 58.112 kg

DRUGS (3)
  1. SYNTHROID [Suspect]
     Indication: HYPOTHYROIDISM
     Dosage: MEDICATIONS FROM COSTCO
     Route: 048
     Dates: start: 19830101, end: 20080125
  2. SYNTHROID [Suspect]
     Dosage: MEDICATION FROM MEDCO PHARMACY, PATIENT REPORTS A DIFFERENT LIGHTER COLOR OF THE PILLS.
     Dates: start: 20080126, end: 20080127
  3. SYNTHROID [Suspect]
     Dates: start: 20080128

REACTIONS (3)
  - COLD SWEAT [None]
  - DIZZINESS [None]
  - MUSCLE TIGHTNESS [None]
